FAERS Safety Report 9900125 (Version 1)
Quarter: 2014Q1

REPORT INFORMATION
  Report Type: Not Available
  Country: DE (occurrence: DE)
  Receive Date: 20140214
  Receipt Date: 20140214
  Transmission Date: 20141002
  Serious: Yes (Other)
  Sender: FDA-Public Use
  Company Number: DE-BAXTER-2014BAX006033

PATIENT
  Age: 61 Year
  Sex: Male
  Weight: 118 kg

DRUGS (1)
  1. KIOVIG (20 G/200 ML) [Suspect]
     Indication: IMMUNOMODULATORY THERAPY
     Route: 042

REACTIONS (1)
  - Venous thrombosis limb [Recovering/Resolving]
